FAERS Safety Report 8810895 (Version 1)
Quarter: 2012Q4

REPORT INFORMATION
  Report Type: Spontaneous
  Country: US (occurrence: None)
  Receive Date: 20120924
  Receipt Date: 20120924
  Transmission Date: 20130627
  Serious: Yes (Disabling)
  Sender: FDA-Public Use
  Company Number: None

PATIENT
  Age: 21 Year
  Sex: Male
  Weight: 90.72 kg

DRUGS (1)
  1. VYVANSE [Suspect]

REACTIONS (3)
  - Dry mouth [None]
  - Dental caries [None]
  - Tooth fracture [None]
